FAERS Safety Report 7437400-1 (Version None)
Quarter: 2011Q2

REPORT INFORMATION
  Report Type: 
  Country: None (occurrence: None)
  Receive Date: 20110426
  Receipt Date: 20110420
  Transmission Date: 20111010
  Serious: Yes (Other)
  Sender: FDA-Public Use
  Company Number: US-SANOFI-AVENTIS-2010SA020865

PATIENT
  Age: 71 Year
  Sex: Female
  Weight: 49 kg

DRUGS (15)
  1. MAXAIR [Concomitant]
  2. TRAVATAN [Concomitant]
     Indication: GLAUCOMA
  3. ALL OTHER THERAPEUTIC PRODUCTS [Concomitant]
  4. VITAMINS [Concomitant]
  5. ASPIRIN [Concomitant]
     Dates: start: 20090101
  6. PREVACID [Concomitant]
     Indication: GASTRIC DISORDER
  7. CICLESONIDE [Concomitant]
     Indication: ASTHMA
     Dates: start: 20090101
  8. REMERON [Concomitant]
     Indication: SLEEP DISORDER
     Route: 065
  9. ALL OTHER THERAPEUTIC PRODUCTS [Concomitant]
     Indication: EYE DISORDER
     Dates: start: 20080101
  10. IBANDRONIC ACID [Concomitant]
     Dosage: QUARTERLY
     Route: 051
  11. CALCIUM [Concomitant]
  12. METRONIDAZOLE [Concomitant]
     Indication: ROSACEA
  13. MULTAQ [Suspect]
     Indication: ATRIAL FIBRILLATION
     Route: 048
     Dates: start: 20100407, end: 20110419
  14. VITAMIN B-12 [Concomitant]
     Dates: start: 20090101
  15. RETIN-A [Concomitant]
     Indication: ROSACEA

REACTIONS (3)
  - ATRIAL FIBRILLATION [None]
  - SYNCOPE [None]
  - HEART RATE INCREASED [None]
